FAERS Safety Report 7704475-1 (Version None)
Quarter: 2011Q3

REPORT INFORMATION
  Report Type: 
  Country: None (occurrence: None)
  Receive Date: 20110823
  Receipt Date: 20110817
  Transmission Date: 20111222
  Serious: Yes (Hospitalization)
  Sender: FDA-Public Use
  Company Number: US-ABBOTT-11P-163-0847628-00

PATIENT
  Sex: Male
  Weight: 103.97 kg

DRUGS (3)
  1. HUMIRA [Suspect]
     Dates: start: 20090101
  2. COREG [Concomitant]
     Indication: HYPERTENSION
  3. HUMIRA [Suspect]
     Indication: PSORIATIC ARTHROPATHY
     Dates: start: 20080101, end: 20090101

REACTIONS (1)
  - CARDIAC PACEMAKER REPLACEMENT [None]
